FAERS Safety Report 14667450 (Version 1)
Quarter: 2018Q1

REPORT INFORMATION
  Report Type: Spontaneous
  Country: FI (occurrence: FI)
  Receive Date: 20180322
  Receipt Date: 20180322
  Transmission Date: 20180509
  Serious: Yes (Life-Threatening)
  Sender: FDA-Public Use
  Company Number: FI-AMGEN-FINSP2018036511

PATIENT
  Age: 78 Year
  Sex: Male

DRUGS (10)
  1. PRIMASPAN [Concomitant]
     Active Substance: ASPIRIN
     Dosage: 100 MG, QD
     Route: 048
  2. SERETIDE [Concomitant]
     Active Substance: FLUTICASONE PROPIONATE\SALMETEROL XINAFOATE
     Dosage: 2 DF, QD
     Route: 055
  3. BISOPROLOL RATIOPHARM [Concomitant]
     Active Substance: BISOPROLOL
     Dosage: 5 MG, QD
     Route: 048
  4. OXYCONTIN [Concomitant]
     Active Substance: OXYCODONE HYDROCHLORIDE
     Dosage: 20 MG, QD
     Route: 048
  5. COLGATE DURAPHAT [Concomitant]
     Active Substance: SODIUM FLUORIDE
     Dosage: UNK
  6. CALCICHEW D3 FORTE SITRUUNA [Concomitant]
     Dosage: UNK
     Route: 048
  7. ELIGARD [Concomitant]
     Active Substance: LEUPROLIDE ACETATE
     Dosage: UNK
     Route: 058
  8. ATORVASTATIN RATIOPHARM [Concomitant]
     Active Substance: ATORVASTATIN
     Dosage: 80 MG, QD
     Route: 048
  9. XGEVA [Suspect]
     Active Substance: DENOSUMAB
     Indication: PROSTATE CANCER
     Dosage: UNK
     Route: 058
     Dates: start: 20180206, end: 20180220
  10. FURESIS [Concomitant]
     Active Substance: FUROSEMIDE
     Dosage: 60 MG, QD
     Route: 048

REACTIONS (3)
  - Fall [Not Recovered/Not Resolved]
  - Malaise [Not Recovered/Not Resolved]
  - Hypocalcaemia [Not Recovered/Not Resolved]

NARRATIVE: CASE EVENT DATE: 201802
